FAERS Safety Report 19371156 (Version 1)
Quarter: 2021Q2

REPORT INFORMATION
  Report Type: Spontaneous
  Country: KR (occurrence: KR)
  Receive Date: 20210604
  Receipt Date: 20210604
  Transmission Date: 20210717
  Serious: Yes (Other)
  Sender: FDA-Public Use
  Company Number: KR-AMGEN-KORSP2021084294

PATIENT
  Age: 70 Year
  Sex: Male

DRUGS (1)
  1. GRAN [Suspect]
     Active Substance: FILGRASTIM
     Indication: PRODUCT USED FOR UNKNOWN INDICATION
     Dosage: UNK
     Route: 065

REACTIONS (6)
  - Rash macular [Unknown]
  - Rash [Unknown]
  - Rash maculo-papular [Unknown]
  - Genital abscess [Unknown]
  - Angioedema [Unknown]
  - Skin discolouration [Unknown]

NARRATIVE: CASE EVENT DATE: 20080908
